FAERS Safety Report 4744946-3 (Version None)
Quarter: 2005Q3

REPORT INFORMATION
  Report Type: 
  Country: None (occurrence: None)
  Receive Date: 20050812
  Receipt Date: 20050812
  Transmission Date: 20060218
  Serious: No
  Sender: FDA-Public Use
  Company Number: None

PATIENT
  Sex: Male

DRUGS (2)
  1. AVANDIA [Suspect]
  2. AMARYL [Suspect]

REACTIONS (1)
  - DRUG DISPENSING ERROR [None]
